FAERS Safety Report 8225539-2 (Version None)
Quarter: 2012Q1

REPORT INFORMATION
  Report Type: 
  Country: None (occurrence: None)
  Receive Date: 20120321
  Receipt Date: 20120313
  Transmission Date: 20120608
  Serious: Yes (Other)
  Sender: FDA-Public Use
  Company Number: BR-JNJFOC-20120304509

PATIENT
  Age: 45 Year
  Sex: Female
  Weight: 53 kg

DRUGS (4)
  1. ORTHO EVRA [Suspect]
     Indication: CONTRACEPTION
     Route: 062
     Dates: start: 20120306
  2. ORTHO EVRA [Suspect]
     Route: 062
     Dates: start: 20050101
  3. OMEPRAZOLE [Concomitant]
     Route: 065
  4. UNKNOWN MEDICATION [Concomitant]
     Route: 065
     Dates: start: 20110101

REACTIONS (8)
  - DRUG PRESCRIBING ERROR [None]
  - URINARY TRACT INFECTION [None]
  - DRUG ADMINISTERED AT INAPPROPRIATE SITE [None]
  - BREAST SWELLING [None]
  - MAMMOPLASTY [None]
  - ANAEMIA [None]
  - NECK PAIN [None]
  - PAIN [None]
